FAERS Safety Report 6601960-0 (Version None)
Quarter: 2010Q1

REPORT INFORMATION
  Report Type: 
  Country: None (occurrence: None)
  Receive Date: 20100225
  Receipt Date: 20100216
  Transmission Date: 20100710
  Serious: Yes (Hospitalization, Disabling)
  Sender: FDA-Public Use
  Company Number: US-MERCK-0808USA04593

PATIENT
  Age: 82 Year
  Sex: Female

DRUGS (2)
  1. FOSAMAX [Suspect]
     Indication: OSTEOPOROSIS PROPHYLAXIS
     Route: 048
     Dates: start: 20050701, end: 20061001
  2. [THERAPY UNSPECIFIED] [Concomitant]
     Indication: HORMONE THERAPY
     Route: 065
     Dates: start: 19940101

REACTIONS (8)
  - ANXIETY [None]
  - ATRIAL FIBRILLATION [None]
  - BACK DISORDER [None]
  - BLOOD CHOLESTEROL INCREASED [None]
  - DEPRESSION [None]
  - JAW DISORDER [None]
  - LACERATION [None]
  - OSTEONECROSIS [None]
